FAERS Safety Report 14343767 (Version 1)
Quarter: 2017Q4

REPORT INFORMATION
  Report Type: Spontaneous
  Country: US (occurrence: US)
  Receive Date: 20171229
  Receipt Date: 20171229
  Transmission Date: 20180321
  Serious: No
  Sender: FDA-Public Use
  Company Number: None

PATIENT
  Age: 67 Year
  Sex: Female

DRUGS (1)
  1. CAPECITABINE 500MG ROXANE [Suspect]
     Active Substance: CAPECITABINE
     Indication: BREAST CANCER FEMALE
     Dosage: 1000MG BID X 14 DAYS ON, 7 DAYS OFF ORAL
     Route: 048
     Dates: start: 201611

REACTIONS (1)
  - Diarrhoea [None]
